FAERS Safety Report 11229991 (Version 1)
Quarter: 2015Q3

REPORT INFORMATION
  Report Type: Spontaneous
  Country: US (occurrence: US)
  Receive Date: 20150701
  Receipt Date: 20150701
  Transmission Date: 20151125
  Serious: Yes (Other)
  Sender: FDA-Public Use
  Company Number: US-ALVOGEN-2015AL002557

PATIENT
  Sex: Female

DRUGS (2)
  1. AMLODIPINE [Suspect]
     Active Substance: AMLODIPINE BESYLATE
     Indication: PRODUCT USED FOR UNKNOWN INDICATION
     Dates: start: 20150608, end: 20150610
  2. LISINOPRIL AND HYDROCHLOROTHIAZIDE [Suspect]
     Active Substance: HYDROCHLOROTHIAZIDE\LISINOPRIL
     Indication: HYPERTENSION
     Route: 048
     Dates: start: 20150608, end: 20150610

REACTIONS (6)
  - Atrial hypertrophy [Unknown]
  - Dizziness [Unknown]
  - Cerebrovascular accident [Unknown]
  - Hypotension [Unknown]
  - Photophobia [Unknown]
  - Vision blurred [Unknown]

NARRATIVE: CASE EVENT DATE: 201506
